FAERS Safety Report 13534652 (Version 1)
Quarter: 2017Q2

REPORT INFORMATION
  Report Type: Spontaneous
  Country: DE (occurrence: DE)
  Receive Date: 20170511
  Receipt Date: 20170511
  Transmission Date: 20170830
  Serious: Yes (Disabling, Other)
  Sender: FDA-Public Use
  Company Number: DE-009507513-1705DEU002286

PATIENT
  Age: 17 Year
  Sex: Male
  Weight: 70 kg

DRUGS (1)
  1. PROPECIA [Suspect]
     Active Substance: FINASTERIDE
     Indication: ALOPECIA
     Dosage: 1 MG, 1 DAY
     Route: 048
     Dates: start: 2006, end: 201206

REACTIONS (47)
  - Memory impairment [Unknown]
  - Disorientation [Unknown]
  - Irritability [Unknown]
  - Vision blurred [Unknown]
  - Gastrointestinal disorder [Unknown]
  - Mental impairment [Unknown]
  - Muscle spasms [Unknown]
  - Muscle twitching [Unknown]
  - Mucosal dryness [Unknown]
  - Skin disorder [Unknown]
  - Micturition urgency [Unknown]
  - Gastrointestinal candidiasis [Unknown]
  - Heart rate increased [Unknown]
  - Adverse drug reaction [Unknown]
  - Disturbance in attention [Unknown]
  - Speech disorder [Unknown]
  - Reading disorder [Unknown]
  - Hypoaesthesia [Unknown]
  - Tinnitus [Unknown]
  - Food intolerance [Unknown]
  - Impaired healing [Unknown]
  - Male orgasmic disorder [Unknown]
  - Stress [Unknown]
  - Fatigue [Unknown]
  - Blood pressure decreased [Unknown]
  - Apathy [Unknown]
  - Lethargy [Unknown]
  - Myalgia [Unknown]
  - Alcohol intolerance [Unknown]
  - Oral disorder [Unknown]
  - Ejaculation disorder [Unknown]
  - Suicidal ideation [Unknown]
  - Dyspnoea [Unknown]
  - Aphasia [Unknown]
  - Depression [Unknown]
  - Hyperhidrosis [Unknown]
  - Muscular weakness [Unknown]
  - Hyperacusis [Unknown]
  - Infection susceptibility increased [Unknown]
  - Glossitis [Unknown]
  - Personality change [Unknown]
  - Dysphemia [Unknown]
  - Dry skin [Unknown]
  - Gingival recession [Unknown]
  - Eczema [Unknown]
  - Arthralgia [Unknown]
  - Inflammation [Unknown]

NARRATIVE: CASE EVENT DATE: 2006
